FAERS Safety Report 5167564-4 (Version None)
Quarter: 2006Q4

REPORT INFORMATION
  Report Type: 
  Country: None (occurrence: None)
  Receive Date: 20060830
  Receipt Date: 20060427
  Transmission Date: 20070319
  Serious: Yes (Other)
  Sender: FDA-Public Use
  Company Number: 222171

PATIENT
  Age: 75 Year
  Sex: Male

DRUGS (9)
  1. XOLAIR [Suspect]
     Indication: ASTHMA
     Dosage: 300 MG, Q4W
     Dates: start: 20050429
  2. THEO-DUR [Concomitant]
  3. SINGULAIR [Concomitant]
  4. LORATADINE [Concomitant]
  5. ADVAIR DISKUS 100/50 [Concomitant]
  6. LISINOPRIL [Concomitant]
  7. FLONASE [Concomitant]
  8. SUDAFED 12 HOUR [Concomitant]
  9. PRILOSEC [Concomitant]

REACTIONS (1)
  - PROSTATE CANCER [None]
